FAERS Safety Report 8459269-9 (Version None)
Quarter: 2012Q2

REPORT INFORMATION
  Report Type: 
  Country: None (occurrence: None)
  Receive Date: 20120622
  Receipt Date: 20120608
  Transmission Date: 20120825
  Serious: Yes (Hospitalization)
  Sender: FDA-Public Use
  Company Number: US-WATSON-2012-10078

PATIENT
  Sex: Male
  Weight: 135 kg

DRUGS (12)
  1. RILONACEPT [Suspect]
     Indication: GOUT
     Dosage: BLINDED (1 IN 1-2) 40MG (40MG, 1 IN 1 D)
     Route: 058
     Dates: start: 20120119, end: 20120517
  2. ADDERALL 5 [Concomitant]
     Indication: ATTENTION DEFICIT/HYPERACTIVITY DISORDER
     Dosage: 30MG, 1 IN 1 D
     Route: 048
     Dates: start: 20010101
  3. COLCRYS [Concomitant]
     Dosage: 1.2MG, 1 IN 1 D
     Route: 048
     Dates: start: 20120503, end: 20120504
  4. ALLOPURINOL [Concomitant]
     Indication: GOUT
     Dosage: 500MG, 1 IN 1 D
     Route: 048
     Dates: start: 20120221, end: 20120520
  5. KETOROLAC TROMETHAMINE [Concomitant]
     Indication: GOUT
     Dosage: 60MG, 1 IN 1 D
     Route: 030
     Dates: start: 20120503, end: 20120503
  6. IBUPROFEN [Concomitant]
     Indication: PAIN MANAGEMENT
     Dosage: 800MG AS NEEDED
     Route: 048
     Dates: start: 19990101
  7. PREDNISONE TAB [Suspect]
     Dosage: 35MG TO 10MG 1 IN 1 D
     Route: 048
     Dates: start: 20120224, end: 20120229
  8. ALLOPURINOL [Concomitant]
     Dosage: 400 MG, 1 IN 1 D
     Route: 048
     Dates: start: 20120207, end: 20120220
  9. ALLOPURINOL [Concomitant]
     Dosage: 300MG, 1 IN 1 D
     Route: 048
     Dates: start: 20120119, end: 20120206
  10. PREDNISONE TAB [Suspect]
     Indication: GOUT
     Dosage: 40MG, 1 IN 1 D
     Route: 048
     Dates: start: 20120503, end: 20120510
  11. COLCRYS [Concomitant]
     Indication: GOUT
     Dosage: 0.6MG, 1 IN 1 D
     Route: 048
     Dates: start: 20120514, end: 20120520
  12. PREDNISONE TAB [Suspect]
     Dosage: 35MG TO 5 MG
     Route: 048
     Dates: start: 20120209, end: 20120212

REACTIONS (1)
  - CELLULITIS [None]
